FAERS Safety Report 5360763-8 (Version None)
Quarter: 2007Q2

REPORT INFORMATION
  Report Type: 
  Country: None (occurrence: None)
  Receive Date: 20070618
  Receipt Date: 20070612
  Transmission Date: 20071010
  Serious: Yes (Life-Threatening, Other)
  Sender: FDA-Public Use
  Company Number: JP-BRISTOL-MYERS SQUIBB COMPANY-13816475

PATIENT
  Age: 61 Year
  Sex: Male

DRUGS (8)
  1. ENDOXAN [Suspect]
     Indication: MULTIPLE MYELOMA
     Route: 042
     Dates: start: 20070521, end: 20070522
  2. ENDOXAN [Suspect]
     Indication: STEM CELL TRANSPLANT
     Route: 042
     Dates: start: 20070521, end: 20070522
  3. GASTER D [Concomitant]
  4. MUCOSTA [Concomitant]
  5. OZEX [Concomitant]
  6. DIFLUCAN [Concomitant]
  7. MAGNESIUM OXIDE [Concomitant]
  8. PURSENNID [Concomitant]

REACTIONS (4)
  - ALTERED STATE OF CONSCIOUSNESS [None]
  - BACK PAIN [None]
  - DELIRIUM [None]
  - RHABDOMYOLYSIS [None]
